FAERS Safety Report 4726860-2 (Version None)
Quarter: 2005Q3

REPORT INFORMATION
  Report Type: 
  Country: None (occurrence: None)
  Receive Date: 20050726
  Receipt Date: 20050721
  Transmission Date: 20060218
  Serious: Yes (Hospitalization, Other)
  Sender: FDA-Public Use
  Company Number: FRWYE847921JUL05

PATIENT
  Age: 39 Year
  Sex: Female

DRUGS (2)
  1. EFFEXOR XR [Suspect]
     Indication: DEPRESSION
     Dosage: 75 MG DAILY ORAL
     Route: 048
     Dates: start: 20030715, end: 20050524
  2. LEXOMIL (BROMAZEPAM, , 0) [Suspect]
     Dosage: 2 TABLET 1X PER 1 DAY ORAL
     Route: 048
     Dates: start: 20040315, end: 20050524

REACTIONS (11)
  - BLOOD PHOSPHORUS DECREASED [None]
  - COAGULATION FACTOR V LEVEL DECREASED [None]
  - CYTOLYTIC HEPATITIS [None]
  - HEPATIC ENCEPHALOPATHY [None]
  - HEPATITIS FULMINANT [None]
  - PROTHROMBIN TIME RATIO DECREASED [None]
  - PYRAMIDAL TRACT SYNDROME [None]
  - SOMNOLENCE [None]
  - STAPHYLOCOCCAL BACTERAEMIA [None]
  - STAPHYLOCOCCAL INFECTION [None]
  - UTERINE LEIOMYOMA [None]
